FAERS Safety Report 21990263 (Version 1)
Quarter: 2023Q1

REPORT INFORMATION
  Report Type: Spontaneous
  Country: DE (occurrence: DE)
  Receive Date: 20230214
  Receipt Date: 20230214
  Transmission Date: 20230417
  Serious: Yes (Other)
  Sender: FDA-Public Use
  Company Number: DE-MAYNE PHARMA-2023TMD00050

PATIENT
  Age: 7 Year
  Sex: Male

DRUGS (1)
  1. ESTRADIOL [Suspect]
     Active Substance: ESTRADIOL
     Dosage: MATERNAL USE: GEL; 5 PUMP ACTUATIONS (3.75 MG OF ESTRADIOL) PER DAY HORMONAL THERAPY
     Route: 061

REACTIONS (3)
  - Gynaecomastia [Recovering/Resolving]
  - Accidental exposure to product by child [Recovered/Resolved]
  - Epiphyses premature fusion [Recovering/Resolving]
